FAERS Safety Report 9242943 (Version 1)
Quarter: 2013Q2

REPORT INFORMATION
  Report Type: Spontaneous
  Country: GB (occurrence: GB)
  Receive Date: 20130420
  Receipt Date: 20130420
  Transmission Date: 20140414
  Serious: Yes (Life-Threatening, Hospitalization, Disabling)
  Sender: FDA-Public Use
  Company Number: GB-TEVA-397662ISR

PATIENT
  Age: 85 Year
  Sex: Female

DRUGS (11)
  1. CLOPIDOGREL [Suspect]
     Indication: CEREBROVASCULAR ACCIDENT
     Route: 048
     Dates: end: 20130324
  2. PRADAXA [Suspect]
     Indication: PROPHYLAXIS
     Route: 048
     Dates: start: 20130316, end: 20130317
  3. ASPIRIN [Suspect]
     Indication: PROPHYLAXIS
     Dosage: INITIALLY 75MG OD, INCREASED TO 300MG OD (GIVEN 2 STAT DOSES OF 225MG)
     Route: 048
  4. ASPIRIN [Suspect]
     Indication: PROPHYLAXIS
     Dosage: INITIALLY 75MG OD, INCREASED TO 300MG OD (GIVEN 2 STAT DOSES OF 225MG)
     Route: 048
     Dates: end: 20130324
  5. ASPIRIN [Suspect]
     Indication: PROPHYLAXIS
     Dosage: GIVEN 2 STAT DOSES OF 225MG.
     Route: 048
  6. CLEXANE [Suspect]
     Indication: PROPHYLAXIS
     Route: 058
     Dates: start: 20130316, end: 20130317
  7. RAMIPRIL [Concomitant]
     Dosage: OM
     Route: 048
  8. SIMVASTATIN [Concomitant]
     Dosage: ON
     Route: 048
  9. GABAPENTIN [Concomitant]
     Route: 048
  10. PARACETAMOL [Concomitant]
     Route: 048
  11. ANAESTHETICS NOS [Concomitant]
     Indication: HIP ARTHROPLASTY
     Dates: start: 20130315, end: 20130315

REACTIONS (2)
  - Ischaemic stroke [Not Recovered/Not Resolved]
  - Rectal haemorrhage [Not Recovered/Not Resolved]
